FAERS Safety Report 7825514-3 (Version None)
Quarter: 2011Q4

REPORT INFORMATION
  Report Type: 
  Country: None (occurrence: None)
  Receive Date: 20111019
  Receipt Date: 20111014
  Transmission Date: 20120403
  Serious: Yes (Life-Threatening, Hospitalization, Other)
  Sender: FDA-Public Use
  Company Number: RO-ABBOTT-11P-135-0864550-00

PATIENT
  Sex: Male
  Weight: 72 kg

DRUGS (5)
  1. HUMIRA [Suspect]
     Indication: PSORIASIS
     Route: 058
     Dates: start: 20110829, end: 20111003
  2. CONVULEX [Concomitant]
     Indication: ADJUSTMENT DISORDER
     Dosage: DAILY DOSE: 600MG
     Route: 048
     Dates: start: 20110829
  3. MIRZATEN [Concomitant]
     Indication: ADJUSTMENT DISORDER
     Dosage: DAILY DOSE: 15MG
     Route: 048
     Dates: start: 20110824
  4. ALPRAZOLAM [Concomitant]
     Indication: ADJUSTMENT DISORDER
     Dosage: DAILY DOSE: 1MG
     Route: 048
     Dates: start: 20110824
  5. METHOTREXATE [Concomitant]
     Indication: PSORIASIS
     Dosage: 10MG/WEEK
     Route: 050
     Dates: start: 20110824

REACTIONS (2)
  - HODGKIN'S DISEASE [None]
  - LYMPHADENOPATHY [None]
